FAERS Safety Report 24648264 (Version 1)
Quarter: 2024Q4

REPORT INFORMATION
  Report Type: Spontaneous
  Country: US (occurrence: None)
  Receive Date: 20241121
  Receipt Date: 20241121
  Transmission Date: 20250114
  Serious: No
  Sender: Public
  Company Number: None

PATIENT
  Age: 41 Year
  Sex: Female
  Weight: 136.08 kg

DRUGS (1)
  1. COSENTYX [Suspect]
     Active Substance: SECUKINUMAB
     Indication: Hidradenitis
     Dosage: OTHER QUANTITY : 300MG (1 PEN) ;?FREQUENCY : AS DIRECTED;?INJECT 3(L0MG (1 PEN) SU8CUTANEOUSL YONCE
     Route: 058
     Dates: start: 202410

REACTIONS (1)
  - COVID-19 [None]
